FAERS Safety Report 13983351 (Version 12)
Quarter: 2021Q2

REPORT INFORMATION
  Report Type: Spontaneous
  Country: US (occurrence: US)
  Receive Date: 20170918
  Receipt Date: 20210615
  Transmission Date: 20210716
  Serious: Yes (Other)
  Sender: FDA-Public Use
  Company Number: US-PFIZER INC-2017397457

PATIENT
  Age: 72 Year
  Sex: Female

DRUGS (2)
  1. XELJANZ XR [Suspect]
     Active Substance: TOFACITINIB CITRATE
     Dosage: 11 MG, DAILY
  2. PREMARIN [Concomitant]
     Active Substance: ESTROGENS, CONJUGATED
     Dosage: UNK

REACTIONS (22)
  - Arthralgia [Unknown]
  - Hot flush [Unknown]
  - Dyspnoea [Unknown]
  - Cough [Not Recovered/Not Resolved]
  - Illness [Not Recovered/Not Resolved]
  - Fall [Unknown]
  - Back disorder [Unknown]
  - Pain in extremity [Unknown]
  - Dysphonia [Unknown]
  - Speech disorder [Unknown]
  - Hernia [Not Recovered/Not Resolved]
  - Irritable bowel syndrome [Unknown]
  - Feeling abnormal [Unknown]
  - Gastrooesophageal reflux disease [Not Recovered/Not Resolved]
  - Cataract [Not Recovered/Not Resolved]
  - Patella fracture [Unknown]
  - Chronic obstructive pulmonary disease [Not Recovered/Not Resolved]
  - Sensitivity to weather change [Unknown]
  - Osteoporosis [Not Recovered/Not Resolved]
  - Visual impairment [Unknown]
  - Lung disorder [Unknown]
  - Memory impairment [Unknown]

NARRATIVE: CASE EVENT DATE: 2017
